FAERS Safety Report 24987600 (Version 3)
Quarter: 2025Q1

REPORT INFORMATION
  Report Type: Spontaneous
  Country: US (occurrence: US)
  Receive Date: 20250219
  Receipt Date: 20250224
  Transmission Date: 20250408
  Serious: Yes (Other)
  Sender: PFIZER
  Company Number: US-PFIZER INC-202500038151

PATIENT
  Age: 59 Year
  Sex: Female

DRUGS (30)
  1. IBRANCE [Suspect]
     Active Substance: PALBOCICLIB
     Route: 048
     Dates: start: 20230218
  2. DENOSUMAB [Suspect]
     Active Substance: DENOSUMAB
  3. ALPHA LIPOIC [Concomitant]
  4. ATORVASTATIN [Concomitant]
     Active Substance: ATORVASTATIN
  5. DIETARY SUPPLEMENT [Concomitant]
     Active Substance: DIETARY SUPPLEMENT
  6. CLOBETASOL [Concomitant]
     Active Substance: CLOBETASOL
  7. DIMETHICONE [Concomitant]
     Active Substance: DIMETHICONE
  8. GABAPENTIN [Concomitant]
     Active Substance: GABAPENTIN
  9. HYDROCHLOROTHIAZIDE [Concomitant]
     Active Substance: HYDROCHLOROTHIAZIDE
  10. HYDROCODONE BITARTRATE AND ACETAMINOPHEN [Concomitant]
     Active Substance: ACETAMINOPHEN\HYDROCODONE BITARTRATE
  11. INTRAROSA [Concomitant]
     Active Substance: PRASTERONE
  12. JARDIANCE [Concomitant]
     Active Substance: EMPAGLIFLOZIN
  13. LETROZOLE [Concomitant]
     Active Substance: LETROZOLE
  14. LIDO/PRILOCAINE [Concomitant]
  15. LOSARTAN [Concomitant]
     Active Substance: LOSARTAN
  16. LOVAZA [Concomitant]
     Active Substance: OMEGA-3-ACID ETHYL ESTERS
  17. METFORMIN [Concomitant]
     Active Substance: METFORMIN HYDROCHLORIDE
  18. NAPROXEN [Concomitant]
     Active Substance: NAPROXEN
  19. NYSTATIN [Concomitant]
     Active Substance: NYSTATIN
  20. OMEPRAZOLE [Concomitant]
     Active Substance: OMEPRAZOLE
  21. OSTEO-BI-FLEX [Concomitant]
  22. OXYBUTYNIN [Concomitant]
     Active Substance: OXYBUTYNIN
  23. ACETAMINOPHEN\OXYCODONE HYDROCHLORIDE\OXYCODONE TEREPHTHALATE [Concomitant]
     Active Substance: ACETAMINOPHEN\OXYCODONE HYDROCHLORIDE\OXYCODONE TEREPHTHALATE
  24. DIETARY SUPPLEMENT\HERBALS [Concomitant]
     Active Substance: DIETARY SUPPLEMENT\HERBALS
  25. RYBELSUS [Concomitant]
     Active Substance: SEMAGLUTIDE
  26. SLOW MAG [ASCORBIC ACID;MAGNESIUM CARBONATE] [Concomitant]
  27. XYLOMETAZOLINE HYDROCHLORIDE [Concomitant]
     Active Substance: XYLOMETAZOLINE HYDROCHLORIDE
  28. TRIAMCINOLONE [Concomitant]
     Active Substance: TRIAMCINOLONE
  29. VENLAFAXINE [Concomitant]
     Active Substance: VENLAFAXINE HYDROCHLORIDE
  30. VITAMIN C [Concomitant]
     Active Substance: ASCORBIC ACID

REACTIONS (12)
  - Osteonecrosis of jaw [Unknown]
  - Neutropenia [Unknown]
  - Arthralgia [Unknown]
  - Tongue ulceration [Unknown]
  - Macrocytosis [Unknown]
  - Hot flush [Unknown]
  - Night sweats [Unknown]
  - Anxiety [Unknown]
  - Insomnia [Unknown]
  - Abnormal uterine bleeding [Unknown]
  - Iron deficiency anaemia [Unknown]
  - Gastric polyps [Unknown]
